FAERS Safety Report 16254484 (Version 3)
Quarter: 2019Q2

REPORT INFORMATION
  Report Type: Spontaneous
  Country: US (occurrence: US)
  Receive Date: 20190430
  Receipt Date: 20190528
  Transmission Date: 20190711
  Serious: Yes (Other)
  Sender: FDA-Public Use
  Company Number: US-ROCHE-2309183

PATIENT
  Age: 53 Year
  Sex: Female

DRUGS (2)
  1. XOLAIR [Suspect]
     Active Substance: OMALIZUMAB
     Indication: URTICARIA
     Dosage: CURRENT
     Route: 058
     Dates: start: 20181016
  2. XOLAIR [Suspect]
     Active Substance: OMALIZUMAB
     Dosage: CURRENT
     Route: 058
     Dates: start: 20190306, end: 20190412

REACTIONS (4)
  - Plasmacytosis [Unknown]
  - Chest pain [Unknown]
  - Arthralgia [Unknown]
  - Musculoskeletal disorder [Unknown]

NARRATIVE: CASE EVENT DATE: 20190327
